FAERS Safety Report 20531947 (Version 2)
Quarter: 2022Q1

REPORT INFORMATION
  Report Type: Spontaneous
  Country: US (occurrence: US)
  Receive Date: 20220301
  Receipt Date: 20220331
  Transmission Date: 20220423
  Serious: Yes (Disabling)
  Sender: FDA-Public Use
  Company Number: US-PFIZER INC-202200285134

PATIENT
  Age: 70 Year
  Sex: Female
  Weight: 67.13 kg

DRUGS (1)
  1. XELJANZ XR [Suspect]
     Active Substance: TOFACITINIB CITRATE
     Dosage: 11 MG, 1X/DAY AT NIGHT
     Route: 048

REACTIONS (8)
  - Musculoskeletal chest pain [Unknown]
  - Drug ineffective [Unknown]
  - Bronchitis [Unknown]
  - Pain [Unknown]
  - Costochondritis [Unknown]
  - Abdominal pain upper [Unknown]
  - Renal pain [Unknown]
  - Painful respiration [Unknown]

NARRATIVE: CASE EVENT DATE: 20210101
